FAERS Safety Report 20354741 (Version 1)
Quarter: 2022Q1

REPORT INFORMATION
  Report Type: Report from Study
  Country: EG (occurrence: EG)
  Receive Date: 20220120
  Receipt Date: 20220120
  Transmission Date: 20220423
  Serious: Yes (Other)
  Sender: FDA-Public Use
  Company Number: EG-NOVARTISPH-NVSC2022EG010771

PATIENT
  Age: 48 Year
  Sex: Male

DRUGS (3)
  1. ENTRESTO [Suspect]
     Active Substance: SACUBITRIL\VALSARTAN
     Indication: Cardiac failure
     Dosage: 50 MG (STOP DATE: 2 WEEKS AGO)
     Route: 048
     Dates: start: 20210525
  2. ENTRESTO [Suspect]
     Active Substance: SACUBITRIL\VALSARTAN
     Dosage: 50 MG, BID (TIL 26 JUNE 2021)
     Route: 048
     Dates: start: 20210525, end: 20210626
  3. ENTRESTO [Suspect]
     Active Substance: SACUBITRIL\VALSARTAN
     Dosage: 50 MG, QD
     Route: 048
     Dates: start: 20210525, end: 20211226

REACTIONS (3)
  - Dyspnoea [Recovered/Resolved]
  - Intentional dose omission [Recovered/Resolved]
  - Inappropriate schedule of product administration [Recovered/Resolved]

NARRATIVE: CASE EVENT DATE: 20210625
